FAERS Safety Report 4295141-6 (Version None)
Quarter: 2004Q1

REPORT INFORMATION
  Report Type: 
  Country: None (occurrence: None)
  Receive Date: 20040212
  Receipt Date: 20040128
  Transmission Date: 20041129
  Serious: Yes (Hospitalization)
  Sender: FDA-Public Use
  Company Number: 187220

PATIENT
  Age: 53 Year
  Sex: Female
  Weight: 77.1115 kg

DRUGS (6)
  1. AVONEX [Suspect]
     Indication: MULTIPLE SCLEROSIS
     Dosage: 30 MCG QW IM
     Route: 030
     Dates: start: 19990601, end: 20030101
  2. AVONEX [Suspect]
     Indication: MULTIPLE SCLEROSIS
     Dosage: 30 MCG QW IM
     Route: 030
     Dates: start: 20030101
  3. NEURONTIN [Concomitant]
  4. ULTRAM [Concomitant]
  5. NORTRIPTYLINE HCL [Concomitant]
  6. LIPITOR [Concomitant]

REACTIONS (7)
  - CYSTITIS [None]
  - FAECAL INCONTINENCE [None]
  - HEADACHE [None]
  - INFLUENZA LIKE ILLNESS [None]
  - KIDNEY INFECTION [None]
  - PYELONEPHRITIS [None]
  - URINARY INCONTINENCE [None]
